FAERS Safety Report 7691293-6 (Version None)
Quarter: 2011Q3

REPORT INFORMATION
  Report Type: 
  Country: None (occurrence: None)
  Receive Date: 20110818
  Receipt Date: 20110809
  Transmission Date: 20111222
  Serious: Yes (Hospitalization)
  Sender: FDA-Public Use
  Company Number: US-JNJFOC-20101104624

PATIENT
  Sex: Female
  Weight: 51.26 kg

DRUGS (11)
  1. INFLIXIMAB, RECOMBINANT [Suspect]
     Indication: CROHN'S DISEASE
     Route: 042
     Dates: start: 20100603
  2. INFLIXIMAB, RECOMBINANT [Suspect]
     Route: 042
     Dates: start: 20100218
  3. INFLIXIMAB, RECOMBINANT [Suspect]
     Route: 042
     Dates: start: 20090504
  4. INFLIXIMAB, RECOMBINANT [Suspect]
     Route: 042
     Dates: start: 20020808
  5. AZATHIOPRINE [Concomitant]
  6. ANTIHISTAMINES [Concomitant]
     Indication: PREMEDICATION
     Dates: start: 20030708, end: 20060420
  7. INFLIXIMAB, RECOMBINANT [Suspect]
     Route: 042
     Dates: start: 20090713
  8. ANTIHISTAMINES [Concomitant]
     Dates: start: 20020808, end: 20021227
  9. INFLIXIMAB, RECOMBINANT [Suspect]
     Route: 042
     Dates: start: 20100506
  10. ACETAMINOPHEN [Concomitant]
     Indication: PREMEDICATION
     Dates: start: 20030708, end: 20060420
  11. ACETAMINOPHEN [Concomitant]
     Dates: start: 20020808, end: 20021227

REACTIONS (4)
  - MATERNAL EXPOSURE DURING PREGNANCY [None]
  - PREMATURE DELIVERY [None]
  - PRE-ECLAMPSIA [None]
  - PREMATURE RUPTURE OF MEMBRANES [None]
